FAERS Safety Report 6590410-9 (Version None)
Quarter: 2010Q1

REPORT INFORMATION
  Report Type: 
  Country: None (occurrence: None)
  Receive Date: 20100219
  Receipt Date: 20100219
  Transmission Date: 20100710
  Serious: Yes (Hospitalization, Other)
  Sender: FDA-Public Use
  Company Number: US-KINGPHARMUSA00001-K200801307

PATIENT
  Age: 84 Year
  Sex: Male

DRUGS (2)
  1. THROMBIN NOS [Suspect]
     Indication: OPERATIVE HAEMORRHAGE
     Dosage: UNK
     Route: 016
  2. THROMBIN NOS [Suspect]
     Dosage: UNK
     Route: 013

REACTIONS (6)
  - ANTI FACTOR V ANTIBODY POSITIVE [None]
  - ANTIBODY TEST POSITIVE [None]
  - COAGULOPATHY [None]
  - EPISTAXIS [None]
  - HAEMORRHAGIC DISORDER [None]
  - THROMBOPLASTIN ANTIBODY [None]
